FAERS Safety Report 10235497 (Version 1)
Quarter: 2014Q2

REPORT INFORMATION
  Report Type: Spontaneous
  Country: IT (occurrence: IT)
  Receive Date: 20140613
  Receipt Date: 20140613
  Transmission Date: 20141212
  Serious: Yes (Other)
  Sender: FDA-Public Use
  Company Number: IT-WATSON-2014-12300

PATIENT
  Age: 90 Year
  Sex: Female

DRUGS (1)
  1. MIRTAZAPINE (UNKNOWN) [Suspect]
     Indication: AGITATION
     Dosage: 1 DF, DAILY
     Route: 048
     Dates: start: 20140501, end: 20140506

REACTIONS (1)
  - Myoclonus [Recovered/Resolved]
